FAERS Safety Report 20088838 (Version 1)
Quarter: 2021Q4

REPORT INFORMATION
  Report Type: Spontaneous
  Country: US (occurrence: US)
  Receive Date: 20211119
  Receipt Date: 20211119
  Transmission Date: 20220303
  Serious: No
  Sender: FDA-Public Use
  Company Number: US-ALKEM LABORATORIES LIMITED-US-ALKEM-2021-03443

PATIENT
  Age: 88 Year
  Sex: Female

DRUGS (1)
  1. MINOCYCLINE [Suspect]
     Active Substance: MINOCYCLINE HYDROCHLORIDE
     Indication: Arthritis bacterial
     Dosage: UNK (CUMULATIVE DOSE OF 291.5 GRAM)
     Route: 065

REACTIONS (2)
  - Skin hyperpigmentation [Unknown]
  - Conjunctival disorder [Unknown]
